FAERS Safety Report 4448136-3 (Version None)
Quarter: 2004Q3

REPORT INFORMATION
  Report Type: 
  Country: None (occurrence: None)
  Receive Date: 20040812
  Receipt Date: 20040622
  Transmission Date: 20050211
  Serious: No
  Sender: FDA-Public Use
  Company Number: USA040670773

PATIENT
  Age: 74 Year
  Sex: Male

DRUGS (3)
  1. CIALIS [Suspect]
     Indication: NERVE INJURY
     Dosage: 10MG
     Dates: start: 20040620
  2. FLOMAX MR (TAMSULOSIN HYDROCHLORIDE) [Concomitant]
  3. LANOXIN [Concomitant]

REACTIONS (1)
  - THERAPEUTIC RESPONSE DECREASED [None]
